FAERS Safety Report 21117176 (Version 1)
Quarter: 2022Q3

REPORT INFORMATION
  Report Type: Spontaneous
  Country: ES (occurrence: ES)
  Receive Date: 20220722
  Receipt Date: 20220722
  Transmission Date: 20221027
  Serious: Yes (Hospitalization, Other)
  Sender: FDA-Public Use
  Company Number: ES-GRUNENTHAL-2022-105654

PATIENT
  Age: 85 Year
  Sex: Male

DRUGS (6)
  1. BUPRENORPHINE [Suspect]
     Active Substance: BUPRENORPHINE
     Indication: Analgesic therapy
     Dosage: 35 MICROGRAM, 1/HR
     Route: 062
  2. TRAMADOL [Suspect]
     Active Substance: TRAMADOL
     Indication: Product used for unknown indication
     Dosage: 50 MILLIGRAM, EVERY 12 HRS
     Route: 048
  3. TRAMADOL [Suspect]
     Active Substance: TRAMADOL
     Dosage: 100 MILLIGRAM, EVERY 12 HRS
     Route: 048
  4. TRAMADOL [Suspect]
     Active Substance: TRAMADOL
     Dosage: 75 MILLIGRAM, EVERY 12 HRS
     Route: 048
  5. TRAMADOL [Suspect]
     Active Substance: TRAMADOL
     Dosage: 150 MILLIGRAM, EVERY 12 HRS
  6. TRAMADOL [Suspect]
     Active Substance: TRAMADOL
     Dosage: 125 MILLIGRAM, EVERY 12 HRS
     Route: 048

REACTIONS (7)
  - Psychotic disorder [Recovered/Resolved]
  - Dehydration [Unknown]
  - Drug ineffective [Unknown]
  - Vomiting [Unknown]
  - Diarrhoea [Unknown]
  - Intentional self-injury [Recovered/Resolved]
  - Nausea [Unknown]
